FAERS Safety Report 10260499 (Version 3)
Quarter: 2014Q3

REPORT INFORMATION
  Report Type: Spontaneous
  Country: JP (occurrence: JP)
  Receive Date: 20140626
  Receipt Date: 20140721
  Transmission Date: 20150326
  Serious: Yes (Other)
  Sender: FDA-Public Use
  Company Number: JP-ROCHE-1424597

PATIENT
  Age: 83 Year
  Sex: Female
  Weight: 65 kg

DRUGS (8)
  1. LIPOVAS (SIMVASTATIN) [Concomitant]
  2. MOHRUS TAPE [Concomitant]
     Active Substance: KETOPROFEN
  3. LUCENTIS [Suspect]
     Active Substance: RANIBIZUMAB
     Indication: MACULAR OEDEMA
     Route: 050
     Dates: start: 20140603
  4. LUCENTIS [Suspect]
     Active Substance: RANIBIZUMAB
     Indication: RETINAL VEIN OCCLUSION
  5. OLMETEC [Concomitant]
     Active Substance: OLMESARTAN MEDOXOMIL
  6. HYALEIN [Concomitant]
     Active Substance: HYALURONATE SODIUM
  7. XALACOM [Concomitant]
     Active Substance: LATANOPROST\TIMOLOL MALEATE
     Route: 065
     Dates: start: 201302
  8. METHYCOBAL [Concomitant]
     Active Substance: METHYLCOBALAMIN

REACTIONS (1)
  - Cerebral infarction [Not Recovered/Not Resolved]

NARRATIVE: CASE EVENT DATE: 20140620
